FAERS Safety Report 23429041 (Version 2)
Quarter: 2024Q3

REPORT INFORMATION
  Report Type: Spontaneous
  Country: US (occurrence: US)
  Receive Date: 20240122
  Receipt Date: 20240909
  Transmission Date: 20241016
  Serious: No
  Sender: SANOFI AVENTIS
  Company Number: US-SA-SAC20240115000351

PATIENT
  Age: 9 Year
  Sex: Male

DRUGS (1)
  1. DUPIXENT [Suspect]
     Active Substance: DUPILUMAB
     Indication: Dermatitis atopic
     Dosage: 200MG , QOW
     Route: 058

REACTIONS (6)
  - Dry skin [Unknown]
  - Psoriasis [Unknown]
  - Erythema [Unknown]
  - Skin fissures [Unknown]
  - Rash macular [Unknown]
  - Skin burning sensation [Unknown]
